FAERS Safety Report 19147112 (Version 5)
Quarter: 2022Q2

REPORT INFORMATION
  Report Type: Report from Study
  Country: AU (occurrence: AU)
  Receive Date: 20210416
  Receipt Date: 20220411
  Transmission Date: 20220721
  Serious: Yes (Other)
  Sender: FDA-Public Use
  Company Number: NVSC2021AU080937

PATIENT
  Age: 25 Year
  Sex: Female

DRUGS (1)
  1. KYMRIAH [Suspect]
     Active Substance: TISAGENLECLEUCEL
     Indication: Product used for unknown indication
     Dosage: UNK
     Route: 065
     Dates: start: 20200810

REACTIONS (2)
  - Disease progression [Recovered/Resolved]
  - Minimal residual disease [Recovered/Resolved]

NARRATIVE: CASE EVENT DATE: 20210216
